FAERS Safety Report 23964151 (Version 1)
Quarter: 2024Q2

REPORT INFORMATION
  Report Type: Spontaneous
  Country: US (occurrence: None)
  Receive Date: 20240611
  Receipt Date: 20240611
  Transmission Date: 20240715
  Serious: Yes (Hospitalization)
  Sender: FDA-Public Use
  Company Number: None

PATIENT
  Sex: Male

DRUGS (1)
  1. MEKTOVI [Suspect]
     Active Substance: BINIMETINIB
     Indication: Malignant melanoma
     Dosage: 45 MG TWICE A DAY ORAL?
     Route: 048

REACTIONS (6)
  - Skin depigmentation [None]
  - Alopecia [None]
  - Spinal operation [None]
  - Procedural pain [None]
  - Transient ischaemic attack [None]
  - Hemiparesis [None]
